FAERS Safety Report 10697194 (Version 3)
Quarter: 2015Q1

REPORT INFORMATION
  Report Type: Spontaneous
  Country: GR (occurrence: GR)
  Receive Date: 20150108
  Receipt Date: 20150204
  Transmission Date: 20150721
  Serious: Yes (Hospitalization, Other)
  Sender: FDA-Public Use
  Company Number: PHHY2015GR000494

PATIENT
  Age: 63 Year
  Sex: Female
  Weight: 63 kg

DRUGS (5)
  1. CLOPIDOGREL [Concomitant]
     Active Substance: CLOPIDOGREL BISULFATE
     Indication: PRODUCT USED FOR UNKNOWN INDICATION
     Dosage: 75 MG, QD
     Route: 065
  2. COPALIA [Suspect]
     Active Substance: AMLODIPINE BESYLATE\VALSARTAN
     Indication: PRODUCT USED FOR UNKNOWN INDICATION
     Dosage: 1 DF (160 MG VALS/ 10 MG AMLO), QD
     Route: 065
  3. COPALIA [Suspect]
     Active Substance: AMLODIPINE BESYLATE\VALSARTAN
     Dosage: 1.5 DF (160 MG VALS/ 10 MG AMLO), PRN
     Route: 065
  4. CEFPRO [Concomitant]
     Indication: POLYPECTOMY
     Dosage: 4500 MG, BID
     Route: 065
  5. CLOPIDOGREL [Suspect]
     Active Substance: CLOPIDOGREL BISULFATE
     Indication: PRODUCT USED FOR UNKNOWN INDICATION
     Dosage: 75 MG, UNK
     Route: 065

REACTIONS (49)
  - Headache [Unknown]
  - Visual impairment [Unknown]
  - Gastrointestinal disorder [Unknown]
  - Neck pain [Unknown]
  - Pain [Unknown]
  - Herpes zoster [Unknown]
  - Uterine polyp [Recovered/Resolved]
  - Movement disorder [Unknown]
  - Disorientation [Unknown]
  - White blood cell count decreased [Unknown]
  - Heart rate increased [Unknown]
  - Hepatic enzyme increased [Unknown]
  - Blood pressure fluctuation [Unknown]
  - Blood urine present [Unknown]
  - Agitation [Unknown]
  - Urine output increased [Unknown]
  - Blood potassium decreased [Unknown]
  - Muscle twitching [Unknown]
  - Cerebrovascular accident [Unknown]
  - Muscular weakness [Unknown]
  - Blood pressure increased [Unknown]
  - Malaise [Unknown]
  - Dyspnoea [Unknown]
  - Colitis [Unknown]
  - Eye pain [Unknown]
  - Fluid retention [Unknown]
  - Constipation [Unknown]
  - Asthenia [Unknown]
  - Nephrolithiasis [Unknown]
  - Drug ineffective [Unknown]
  - Wrong technique in drug usage process [Unknown]
  - Diabetes mellitus [Unknown]
  - Circulatory collapse [Unknown]
  - Pigmentation disorder [Unknown]
  - Weight decreased [Unknown]
  - Muscle spasms [Unknown]
  - Blood cholesterol increased [Unknown]
  - Feeling abnormal [Unknown]
  - General physical health deterioration [Unknown]
  - Fear [Unknown]
  - Musculoskeletal stiffness [Unknown]
  - Arrhythmia [Unknown]
  - Back pain [Unknown]
  - Dizziness [Unknown]
  - Balance disorder [Unknown]
  - Chronic obstructive pulmonary disease [Unknown]
  - Muscle tone disorder [Unknown]
  - Burning sensation [Unknown]
  - Drug hypersensitivity [Unknown]
